FAERS Safety Report 6056908-7 (Version None)
Quarter: 2009Q1

REPORT INFORMATION
  Report Type: 
  Country: None (occurrence: None)
  Receive Date: 20090129
  Receipt Date: 20090126
  Transmission Date: 20090719
  Serious: Yes (Other)
  Sender: FDA-Public Use
  Company Number: B0555904A

PATIENT
  Age: 10 Year
  Sex: Male

DRUGS (3)
  1. RELENZA [Suspect]
     Indication: INFLUENZA
     Dosage: 10MG TWICE PER DAY
     Route: 055
     Dates: start: 20090113, end: 20090117
  2. COCARL [Concomitant]
     Route: 048
  3. FLAVERIC [Concomitant]
     Route: 048

REACTIONS (7)
  - AGGRESSION [None]
  - AMNESIA [None]
  - CRYING [None]
  - DIZZINESS [None]
  - NIGHTMARE [None]
  - SCREAMING [None]
  - SOMNOLENCE [None]
